FAERS Safety Report 10246880 (Version 1)
Quarter: 2014Q2

REPORT INFORMATION
  Report Type: Spontaneous
  Country: US (occurrence: None)
  Receive Date: 20140617
  Receipt Date: 20140617
  Transmission Date: 20141212
  Serious: Yes (Other)
  Sender: FDA-Public Use
  Company Number: None

PATIENT
  Age: 59 Year
  Sex: Female
  Weight: 58.97 kg

DRUGS (9)
  1. RIBAVARIN [Suspect]
     Indication: HEPATITIS C
     Dosage: 2 PILLS
     Route: 048
     Dates: start: 20140529, end: 20140615
  2. PROGARF [Concomitant]
  3. SOVALDI [Concomitant]
  4. MULTIVITAMIN [Concomitant]
  5. CALCIUM [Concomitant]
  6. MAGNESIUM OXIDE [Concomitant]
  7. VIT C [Concomitant]
  8. FISH OIL [Concomitant]
  9. RANITIDINE HCL [Concomitant]

REACTIONS (4)
  - Dizziness [None]
  - Palpitations [None]
  - Blood pressure increased [None]
  - Anxiety [None]
